FAERS Safety Report 8962866 (Version 1)
Quarter: 2012Q4

REPORT INFORMATION
  Report Type: 
  Country: CA (occurrence: CA)
  Receive Date: 20121214
  Receipt Date: 20121214
  Transmission Date: 20130627
  Serious: Yes (Hospitalization, Other)
  Sender: FDA-Public Use
  Company Number: CA-PFIZER INC-2012310406

PATIENT
  Age: 10 Year
  Sex: Female
  Weight: 50 kg

DRUGS (4)
  1. SALAZOPYRIN [Suspect]
     Dosage: UNK
     Route: 048
  2. FERROUS SULPHATE [Concomitant]
     Dosage: UNK
     Route: 048
  3. NAPROXEN [Concomitant]
     Dosage: UNK
     Route: 048
  4. SALOFALK [Concomitant]
     Dosage: UNK
     Route: 048

REACTIONS (3)
  - Stevens-Johnson syndrome [Recovered/Resolved]
  - Hypoalbuminaemia [Recovered/Resolved]
  - Anaemia [Recovered/Resolved]
